FAERS Safety Report 5662292-0 (Version None)
Quarter: 2008Q1

REPORT INFORMATION
  Report Type: 
  Country: None (occurrence: None)
  Receive Date: 20080312
  Receipt Date: 20080303
  Transmission Date: 20080703
  Serious: Yes (Hospitalization, Other)
  Sender: FDA-Public Use
  Company Number: US-MERCK-0708USA00137

PATIENT
  Age: 73 Year
  Sex: Female
  Weight: 73 kg

DRUGS (4)
  1. FOSAMAX [Suspect]
     Indication: OSTEOPENIA
     Route: 048
     Dates: start: 19980101, end: 20041101
  2. FOSAMAX [Suspect]
     Route: 048
     Dates: start: 20041101, end: 20060101
  3. FOSAMAX PLUS D [Suspect]
     Indication: OSTEOPENIA
     Route: 048
     Dates: start: 20060101, end: 20060301
  4. [THERAPY UNSPECIFIED] [Concomitant]
     Indication: HYPERTENSION
     Route: 065
     Dates: start: 19970101

REACTIONS (25)
  - ACUTE SINUSITIS [None]
  - ASTHENIA [None]
  - BRAIN ABSCESS [None]
  - CAROTID ARTERY STENOSIS [None]
  - CEREBRAL INFARCTION [None]
  - CEREBROVASCULAR ACCIDENT [None]
  - CERUMEN IMPACTION [None]
  - CHRONIC SINUSITIS [None]
  - DIVERTICULUM [None]
  - DYSPNOEA [None]
  - FATIGUE [None]
  - HAEMORRHOIDS [None]
  - HYPERTENSION [None]
  - NORMAL PRESSURE HYDROCEPHALUS [None]
  - OSTEOMYELITIS [None]
  - OSTEONECROSIS [None]
  - OTITIS EXTERNA [None]
  - POLYCYTHAEMIA VERA [None]
  - PULMONARY EMBOLISM [None]
  - RHINITIS ALLERGIC [None]
  - SALIVARY GLAND CANCER [None]
  - SYNCOPE [None]
  - THROMBOPHLEBITIS [None]
  - TRANSIENT ISCHAEMIC ATTACK [None]
  - TYPE 2 DIABETES MELLITUS [None]
